FAERS Safety Report 5896911-0 (Version None)
Quarter: 2008Q3

REPORT INFORMATION
  Report Type: 
  Country: None (occurrence: None)
  Receive Date: 20080924
  Receipt Date: 20080917
  Transmission Date: 20090109
  Serious: Yes (Hospitalization)
  Sender: FDA-Public Use
  Company Number: IL-PFIZER INC-2008078745

PATIENT
  Sex: Male

DRUGS (1)
  1. SOMAVERT [Suspect]
     Dates: start: 20080701, end: 20080902

REACTIONS (1)
  - PANCREATITIS [None]
